FAERS Safety Report 21468460 (Version 1)
Quarter: 2022Q4

REPORT INFORMATION
  Report Type: Report from Study
  Country: MX (occurrence: MX)
  Receive Date: 20221017
  Receipt Date: 20221017
  Transmission Date: 20230113
  Serious: Yes (Hospitalization, Other)
  Sender: FDA-Public Use
  Company Number: MX-002147023-NVSC2022MX143550

PATIENT

DRUGS (2)
  1. RUXOLITINIB [Suspect]
     Active Substance: RUXOLITINIB
     Indication: Myelofibrosis
     Dosage: 15 MG, QD (60 TABLETS)
     Route: 048
     Dates: start: 2018
  2. RUXOLITINIB [Suspect]
     Active Substance: RUXOLITINIB
     Dosage: 15 MG, Q12H (5 MONTHS AGO (UNKNOWN DATE))
     Route: 048

REACTIONS (3)
  - Dyspnoea [Not Recovered/Not Resolved]
  - Hypoxia [Not Recovered/Not Resolved]
  - Inappropriate schedule of product administration [Unknown]

NARRATIVE: CASE EVENT DATE: 20221003
